FAERS Safety Report 10373714 (Version 1)
Quarter: 2014Q1

REPORT INFORMATION
  Report Type: Spontaneous
  Country: US (occurrence: None)
  Receive Date: 20140306
  Receipt Date: 20140306
  Transmission Date: 20141002
  Serious: Yes (Disabling, Other)
  Sender: FDA-Public Use
  Company Number: 163-21880-13031177

PATIENT
  Age: 84 Year
  Sex: Male

DRUGS (3)
  1. REVLIMID (LENALIDOMIDE) (CAPSULES) [Suspect]
     Dosage: 21 IN 28 D
     Route: 048
     Dates: start: 20130122, end: 20130716
  2. CYTARABINE (CYTARABINE)(UNKNOWN) [Suspect]
  3. VELCADE (BORTEZOMIB) [Concomitant]

REACTIONS (1)
  - Platelet count decreased [None]
